FAERS Safety Report 18118769 (Version 1)
Quarter: 2020Q3

REPORT INFORMATION
  Report Type: Spontaneous
  Country: US (occurrence: US)
  Receive Date: 20200805
  Receipt Date: 20200805
  Transmission Date: 20201103
  Serious: No
  Sender: FDA-Public Use
  Company Number: None

PATIENT
  Age: 65 Year
  Sex: Female

DRUGS (2)
  1. TALTZ [Suspect]
     Active Substance: IXEKIZUMAB
     Indication: PSORIATIC ARTHROPATHY
     Dosage: INJECT 160MG (2 PENS) SUBCUTANEOUSLY AT WEEK  0, THEN 80MG ( 1 PEN) AT WEEK 2 FOR   AS DIRECTED
     Route: 058
     Dates: start: 202007
  2. TALTZ [Suspect]
     Active Substance: IXEKIZUMAB
     Indication: PSORIASIS
     Dosage: INJECT 160MG (2 PENS) SUBCUTANEOUSLY AT WEEK  0, THEN 80MG ( 1 PEN) AT WEEK 2 FOR   AS DIRECTED
     Route: 058
     Dates: start: 202007

REACTIONS (1)
  - Pneumonia [None]
